FAERS Safety Report 8122900-1 (Version None)
Quarter: 2012Q1

REPORT INFORMATION
  Report Type: 
  Country: None (occurrence: None)
  Receive Date: 20120208
  Receipt Date: 20120130
  Transmission Date: 20120608
  Serious: Yes (Life-Threatening, Hospitalization)
  Sender: FDA-Public Use
  Company Number: IT-PFIZER INC-2011242177

PATIENT
  Age: 61 Year
  Sex: Male

DRUGS (4)
  1. GEMTUZUMAB OZOGAMICIN [Suspect]
     Indication: ACUTE MYELOID LEUKAEMIA
     Dosage: 5.8 MG, UNK
     Route: 042
     Dates: start: 20070618, end: 20070618
  2. CYTARABINE [Suspect]
     Indication: ACUTE MYELOID LEUKAEMIA
     Dosage: 190 MG, UNK
     Route: 042
     Dates: start: 20070619, end: 20070623
  3. IDARUBICIN HCL [Suspect]
     Indication: ACUTE MYELOID LEUKAEMIA
     Dosage: 15 MG, UNK
     Route: 042
     Dates: start: 20070619, end: 20070623
  4. ETOPOSIDE [Suspect]
     Indication: ACUTE MYELOID LEUKAEMIA
     Dosage: 190 MG, UNK
     Route: 042
     Dates: start: 20070619, end: 20070621

REACTIONS (1)
  - SYSTEMIC CANDIDA [None]
